FAERS Safety Report 7500746-2 (Version None)
Quarter: 2011Q2

REPORT INFORMATION
  Report Type: 
  Country: None (occurrence: None)
  Receive Date: 20110524
  Receipt Date: 20110511
  Transmission Date: 20111010
  Serious: Yes (Disabling)
  Sender: FDA-Public Use
  Company Number: CA-TEVA-283072USA

PATIENT
  Age: 64 Year
  Sex: Female
  Weight: 83.99 kg

DRUGS (28)
  1. ACETAMINOPHEN [Concomitant]
  2. IDARAC [Concomitant]
  3. SULFAMETHOXAZOLE AND TRIMETHOPRIM [Suspect]
     Dosage: 2 DOSAGE FORMS;
  4. ACETAMINOPHEN [Concomitant]
  5. HYDROCHLOROTHIAZIDE [Concomitant]
  6. IRBESARTAN [Concomitant]
  7. ACETYLSALICYLIC ACID SRT [Concomitant]
  8. HOMATROPINE HYDROBROMIDE [Concomitant]
     Route: 047
  9. ACETYLSALICYLIC ACID SRT [Concomitant]
  10. HYZAAR [Concomitant]
  11. KETOROLAC TROMETHAMINE [Concomitant]
  12. CHLORTHALIDONE [Concomitant]
  13. INSULIN [Concomitant]
  14. HUMULIN R [Concomitant]
  15. NABUMETONE [Concomitant]
  16. GLYBURIDE [Concomitant]
  17. ACETAMINOPHEN [Concomitant]
  18. FUROSEMIDE [Concomitant]
  19. IBUPROFEN [Concomitant]
  20. MELOXICAM [Concomitant]
  21. RAMIPRIL [Concomitant]
  22. METFFORMIN HYDROCHLORIDE [Concomitant]
  23. FUROSEMIDE [Concomitant]
  24. BI PREDONIUM [Concomitant]
  25. VALSARTAN [Concomitant]
  26. INSULIN GLARGINE [Concomitant]
     Route: 058
  27. INSULIN HUMAN [Concomitant]
     Route: 058
  28. MOXIFLOXACIN HYDROCHLORIDE [Concomitant]
     Route: 047

REACTIONS (1)
  - VISION BLURRED [None]
